FAERS Safety Report 8589422 (Version 2)
Quarter: 2012Q4

REPORT INFORMATION
  Report Type: 
  Country: ES (occurrence: ES)
  Receive Date: 20120531
  Receipt Date: 20121231
  Transmission Date: 20130627
  Serious: Yes (Disabling)
  Sender: FDA-Public Use
  Company Number: ES-ROCHE-1072991

PATIENT
  Age: 47 Year
  Sex: Female

DRUGS (2)
  1. XOLAIR [Suspect]
     Indication: ASTHMA
     Route: 058
     Dates: start: 20120315
  2. XOLAIR [Suspect]
     Route: 065

REACTIONS (8)
  - Joint swelling [Unknown]
  - Arthralgia [Recovered/Resolved]
  - Myalgia [Recovered/Resolved]
  - Pain [Unknown]
  - Oedema peripheral [Unknown]
  - Asthma [Recovered/Resolved]
  - Dyspnoea [Unknown]
  - Pyrexia [Unknown]
